FAERS Safety Report 18721018 (Version 2)
Quarter: 2021Q1

REPORT INFORMATION
  Report Type: Spontaneous
  Country: US (occurrence: US)
  Receive Date: 20210108
  Receipt Date: 20210111
  Transmission Date: 20210419
  Serious: No
  Sender: FDA-Public Use
  Company Number: US-PFIZER INC-2021005723

PATIENT
  Age: 59 Year
  Sex: Female

DRUGS (3)
  1. CYTOTEC [Suspect]
     Active Substance: MISOPROSTOL
     Indication: MAST CELL ACTIVATION SYNDROME
     Dosage: 600 UG, 4X/DAY (SIX 100MCG TABLETS 4 TIMES A DAY BY MOUTH\3 TABLETS OF 200MCG 4 TIMES A DAY)
     Route: 048
     Dates: start: 1995
  2. CYTOTEC [Suspect]
     Active Substance: MISOPROSTOL
     Indication: ANAPHYLACTIC SHOCK
  3. CYTOTEC [Suspect]
     Active Substance: MISOPROSTOL
     Indication: MASTOCYTOSIS
     Dosage: 100 UG

REACTIONS (4)
  - Off label use [Unknown]
  - Illness [Unknown]
  - Drug ineffective for unapproved indication [Unknown]
  - Drug effective for unapproved indication [Unknown]
